FAERS Safety Report 9162816 (Version 1)
Quarter: 2013Q1

REPORT INFORMATION
  Report Type: Spontaneous
  Country: US (occurrence: None)
  Receive Date: 20130222
  Receipt Date: 20130222
  Transmission Date: 20140127
  Serious: Yes (Other)
  Sender: FDA-Public Use
  Company Number: A1012635A

PATIENT
  Age: 80 Year
  Sex: Female

DRUGS (1)
  1. METHYLCELLULOSE [Suspect]

REACTIONS (2)
  - Palpitations [None]
  - Myocardial infarction [None]
